FAERS Safety Report 5869348-8 (Version None)
Quarter: 2008Q3

REPORT INFORMATION
  Report Type: 
  Country: None (occurrence: None)
  Receive Date: 20080903
  Receipt Date: 20080828
  Transmission Date: 20090109
  Serious: Yes (Other)
  Sender: FDA-Public Use
  Company Number: DE-AMGEN-UK295514

PATIENT
  Age: 77 Year
  Sex: Male

DRUGS (4)
  1. VECTIBIX [Suspect]
     Indication: COLORECTAL CANCER
     Dates: start: 20080303
  2. LUCENTIS [Concomitant]
     Dates: start: 20080310
  3. CETUXIMAB [Concomitant]
     Dates: start: 20050701
  4. CAPECITABINE [Concomitant]
     Dates: start: 20050701

REACTIONS (6)
  - DIZZINESS [None]
  - DYSPNOEA [None]
  - ERYTHEMA [None]
  - HYPERSENSITIVITY [None]
  - INFUSION RELATED REACTION [None]
  - NAUSEA [None]
